FAERS Safety Report 9523008 (Version 4)
Quarter: 2014Q3

REPORT INFORMATION
  Report Type: Spontaneous
  Country: DE (occurrence: DE)
  Receive Date: 20130913
  Receipt Date: 20140806
  Transmission Date: 20150326
  Serious: Yes (Hospitalization, Disabling, Other)
  Sender: FDA-Public Use
  Company Number: DE-BAYER-2013-072912

PATIENT
  Age: 43 Year
  Sex: Female
  Weight: 40 kg

DRUGS (5)
  1. PETIBELLE [Suspect]
     Active Substance: DROSPIRENONE\ETHINYL ESTRADIOL
     Indication: ABDOMINAL ADHESIONS
  2. PETIBELLE [Suspect]
     Active Substance: DROSPIRENONE\ETHINYL ESTRADIOL
     Indication: CROHN^S DISEASE
  3. PETIBELLE [Suspect]
     Active Substance: DROSPIRENONE\ETHINYL ESTRADIOL
     Indication: ABDOMINAL PAIN
     Dosage: 1 DF, QD
     Route: 048
     Dates: start: 2002, end: 201305
  4. DECORTIN H [Concomitant]
     Active Substance: PREDNISOLONE
     Indication: PRODUCT USED FOR UNKNOWN INDICATION
     Dosage: UNK
     Route: 048
  5. CLEXANE [Suspect]
     Active Substance: ENOXAPARIN SODIUM
     Indication: DEEP VEIN THROMBOSIS

REACTIONS (8)
  - Oedema peripheral [Recovered/Resolved]
  - Post thrombotic syndrome [Not Recovered/Not Resolved]
  - Peripheral venous disease [Recovered/Resolved with Sequelae]
  - Off label use [None]
  - Liver function test abnormal [Not Recovered/Not Resolved]
  - Deep vein thrombosis [Recovered/Resolved with Sequelae]
  - Off label use [Recovered/Resolved]
  - Deep vein thrombosis [None]

NARRATIVE: CASE EVENT DATE: 2002
